FAERS Safety Report 25530308 (Version 2)
Quarter: 2025Q3

REPORT INFORMATION
  Report Type: Spontaneous
  Country: US (occurrence: US)
  Receive Date: 20250708
  Receipt Date: 20250731
  Transmission Date: 20251021
  Serious: No
  Sender: SANOFI AVENTIS
  Company Number: US-SA-2025SA187334

PATIENT
  Age: 61 Year
  Sex: Female

DRUGS (1)
  1. KEVZARA [Suspect]
     Active Substance: SARILUMAB
     Indication: Rheumatoid arthritis
     Dosage: 200 MG, QOW
     Route: 058
     Dates: start: 202504

REACTIONS (2)
  - Sinusitis [Recovering/Resolving]
  - Ear infection [Recovering/Resolving]

NARRATIVE: CASE EVENT DATE: 20250601
